FAERS Safety Report 6640249 (Version 4)
Quarter: 2013Q1

REPORT INFORMATION
  Report Type: Report from Study
  Country: US (occurrence: US)
  Receive Date: 20080514
  Receipt Date: 20130313
  Transmission Date: 20140127
  Serious: Yes (Hospitalization)
  Sender: FDA-Public Use
  Company Number: US-AMGEN-US277647

PATIENT
  Age: 59 Year
  Sex: Male
  Weight: 94.9 kg

DRUGS (10)
  1. ETANERCEPT [Suspect]
     Indication: PSORIASIS
     Dosage: 50 MG, QWK
     Route: 058
     Dates: start: 20070223, end: 20080415
  2. ACETYLSALICYLIC ACID [Concomitant]
     Dosage: 325 MG, 3 TIMES/WK
     Route: 048
  3. SIMVASTATIN [Concomitant]
     Dosage: 40 MG, QD
     Route: 048
  4. QUETIAPINE [Concomitant]
     Dosage: UNK
     Route: 048
  5. DIAZEPAM [Concomitant]
     Dosage: 10 MG, QD
     Route: 048
  6. MULTIVITAMINS [Concomitant]
  7. VITAMIN C AND E [Concomitant]
  8. FISH OIL [Concomitant]
  9. GINSENG NOS [Concomitant]
  10. GLUCOSAMINE W/CHONDROITIN SULFATE [Concomitant]

REACTIONS (1)
  - Neuropathy peripheral [Recovered/Resolved]
